FAERS Safety Report 18480349 (Version 1)
Quarter: 2020Q4

REPORT INFORMATION
  Report Type: Spontaneous
  Country: US (occurrence: US)
  Receive Date: 20201109
  Receipt Date: 20201109
  Transmission Date: 20210114
  Serious: Yes (Hospitalization, Other)
  Sender: FDA-Public Use
  Company Number: US-009507513-2011USA000918

PATIENT
  Age: 34 Year
  Sex: Female

DRUGS (2)
  1. PRINIVIL [Suspect]
     Active Substance: LISINOPRIL
     Indication: PRE-ECLAMPSIA
     Dosage: 40 MILLIGRAM
     Route: 048
  2. LABETALOL [Suspect]
     Active Substance: LABETALOL\LABETALOL HYDROCHLORIDE
     Indication: ECLAMPSIA
     Dosage: UNK

REACTIONS (2)
  - Intestinal angioedema [Recovering/Resolving]
  - Intentional product misuse [Unknown]
